FAERS Safety Report 6153733-3 (Version None)
Quarter: 2009Q2

REPORT INFORMATION
  Report Type: 
  Country: None (occurrence: None)
  Receive Date: 20090410
  Receipt Date: 20090327
  Transmission Date: 20091009
  Serious: Yes (Hospitalization, Disabling)
  Sender: FDA-Public Use
  Company Number: 2008-188696-NL

PATIENT
  Age: 38 Year
  Sex: Female
  Weight: 68 kg

DRUGS (3)
  1. NUVARING [Suspect]
     Indication: CONTRACEPTION
     Dates: start: 20031101, end: 20041020
  2. NUVARING [Suspect]
     Indication: MENORRHAGIA
     Dates: start: 20031101, end: 20041020
  3. IBUPROFEN [Concomitant]

REACTIONS (9)
  - DIZZINESS [None]
  - HYPERVENTILATION [None]
  - HYPOPHOSPHATAEMIA [None]
  - HYPOVENTILATION [None]
  - INJURY [None]
  - PULMONARY EMBOLISM [None]
  - PULMONARY INFARCTION [None]
  - SYNCOPE [None]
  - TACHYCARDIA [None]
